FAERS Safety Report 9177209 (Version 2)
Quarter: 2013Q2

REPORT INFORMATION
  Report Type: Report from Study
  Country: US (occurrence: US)
  Receive Date: 20130321
  Receipt Date: 20130423
  Transmission Date: 20140414
  Serious: Yes (Death)
  Sender: FDA-Public Use
  Company Number: US-ASTELLAS-2013US003006

PATIENT
  Age: 55 Year
  Sex: Female
  Weight: 77 kg

DRUGS (11)
  1. ERLOTINIB TABLET [Suspect]
     Indication: HEAD AND NECK CANCER
     Dosage: 100 MG, UID/QD
     Route: 048
     Dates: start: 20121029
  2. ERLOTINIB TABLET [Suspect]
     Dosage: 125 MG, UID/QD
     Route: 048
     Dates: start: 20120924, end: 20121028
  3. PEMETREXED [Suspect]
     Indication: HEAD AND NECK CANCER
     Dosage: UNK
     Route: 065
  4. SYNTHROID [Concomitant]
     Indication: PRODUCT USED FOR UNKNOWN INDICATION
     Dosage: 100 UG, UID/QD
     Route: 065
  5. SERTRALINE [Concomitant]
     Indication: PRODUCT USED FOR UNKNOWN INDICATION
     Dosage: 50 UG, UID/QD
     Route: 065
  6. PANTOPRAZOLE [Concomitant]
     Indication: PRODUCT USED FOR UNKNOWN INDICATION
     Dosage: 40 MG, UID/QD
     Route: 065
  7. OXYCODONE [Concomitant]
     Indication: PRODUCT USED FOR UNKNOWN INDICATION
     Dosage: 10 MG, Q4-6 HOURS
     Route: 065
  8. MINOCYCLINE [Concomitant]
     Indication: PRODUCT USED FOR UNKNOWN INDICATION
     Dosage: 100 MG, BID
     Route: 065
  9. METHADONE [Concomitant]
     Indication: PRODUCT USED FOR UNKNOWN INDICATION
     Dosage: 10 MG, BID
     Route: 065
  10. KLONOPIN [Concomitant]
     Indication: PRODUCT USED FOR UNKNOWN INDICATION
     Dosage: 1 MG, UID/QD
     Route: 065
  11. ALBUTEROL                          /00139501/ [Concomitant]
     Indication: PRODUCT USED FOR UNKNOWN INDICATION
     Dosage: UNK
     Route: 055

REACTIONS (3)
  - Off label use [Unknown]
  - Myocardial infarction [Fatal]
  - Rash [Unknown]
